FAERS Safety Report 21749487 (Version 1)
Quarter: 2022Q4

REPORT INFORMATION
  Report Type: Report from Study
  Country: US (occurrence: US)
  Receive Date: 20221219
  Receipt Date: 20221219
  Transmission Date: 20230112
  Serious: No
  Sender: FDA-Public Use
  Company Number: US-ABBVIE-4199963

PATIENT
  Sex: Male

DRUGS (2)
  1. DUOPA [Suspect]
     Active Substance: CARBIDOPA\LEVODOPA
     Indication: Product used for unknown indication
     Route: 050
     Dates: start: 20171012
  2. DUOPA [Suspect]
     Active Substance: CARBIDOPA\LEVODOPA

REACTIONS (13)
  - Hernia [Unknown]
  - Fall [Unknown]
  - Gait disturbance [Unknown]
  - Freezing phenomenon [Unknown]
  - Device dislocation [Unknown]
  - General physical health deterioration [Unknown]
  - Device placement issue [Unknown]
  - Unevaluable event [Unknown]
  - Skin irritation [Unknown]
  - Acquired diaphragmatic eventration [Unknown]
  - Bradykinesia [Unknown]
  - Dyskinesia [Unknown]
  - Device kink [Unknown]
